FAERS Safety Report 19583844 (Version 2)
Quarter: 2021Q3

REPORT INFORMATION
  Report Type: Report from Study
  Country: HN (occurrence: HN)
  Receive Date: 20210720
  Receipt Date: 20210805
  Transmission Date: 20211014
  Serious: Yes (Other)
  Sender: FDA-Public Use
  Company Number: NVSC2021HN156521

PATIENT
  Sex: Male

DRUGS (3)
  1. DIOVAN [Suspect]
     Active Substance: VALSARTAN
     Indication: HYPERTENSION
     Dosage: 320 MG
     Route: 065
  2. CARDIOASPIRIN [Concomitant]
     Active Substance: ASPIRIN
     Indication: PRODUCT USED FOR UNKNOWN INDICATION
     Dosage: 1 DF, QD
     Route: 065
  3. DIOVAN [Suspect]
     Active Substance: VALSARTAN
     Dosage: 320 MG, QD (STARTED APPROXIMATLY 5 YEARS AGO AND STOPPED 4 YEARS AGO)
     Route: 048

REACTIONS (6)
  - Hypertensive crisis [Recovering/Resolving]
  - Facial discomfort [Unknown]
  - Stress [Unknown]
  - Drug ineffective [Unknown]
  - Hypertension [Recovering/Resolving]
  - Facial paralysis [Recovering/Resolving]
